FAERS Safety Report 7023527-5 (Version None)
Quarter: 2010Q3

REPORT INFORMATION
  Report Type: 
  Country: None (occurrence: None)
  Receive Date: 20100930
  Receipt Date: 20100930
  Transmission Date: 20110219
  Serious: Yes (Other)
  Sender: FDA-Public Use
  Company Number: None

PATIENT
  Sex: Female
  Weight: 79.5 kg

DRUGS (1)
  1. LEVAQUIN [Suspect]
     Indication: NEPHROLITHIASIS
     Dosage: 750MG 1X DAY BY MOUTH
     Route: 048
     Dates: start: 20100808, end: 20100818

REACTIONS (1)
  - TENDONITIS [None]
